FAERS Safety Report 8123017-2 (Version None)
Quarter: 2012Q1

REPORT INFORMATION
  Report Type: 
  Country: None (occurrence: None)
  Receive Date: 20120208
  Receipt Date: 20120201
  Transmission Date: 20120608
  Serious: Yes (Hospitalization)
  Sender: FDA-Public Use
  Company Number: ES-BAXTER-2012BH003638

PATIENT
  Age: 77 Year
  Sex: Male

DRUGS (5)
  1. ACFOL [Concomitant]
     Indication: PROPHYLAXIS
     Route: 048
     Dates: start: 20110810
  2. FLUDARABINE PHOSPHATE [Suspect]
     Indication: CHRONIC LYMPHOCYTIC LEUKAEMIA
     Route: 042
     Dates: start: 20110919, end: 20110921
  3. CYCLOPHOSPHAMIDE [Suspect]
     Indication: CHRONIC LYMPHOCYTIC LEUKAEMIA
     Route: 042
     Dates: start: 20110919, end: 20110921
  4. ACYCLOVIR [Concomitant]
     Indication: PROPHYLAXIS
     Route: 048
     Dates: start: 20110810
  5. SEPTRA [Concomitant]
     Indication: PROPHYLAXIS
     Route: 048
     Dates: start: 20110810

REACTIONS (1)
  - INFECTION [None]
